FAERS Safety Report 5070314-3 (Version None)
Quarter: 2006Q3

REPORT INFORMATION
  Report Type: 
  Country: None (occurrence: None)
  Receive Date: 20060802
  Receipt Date: 20060131
  Transmission Date: 20061208
  Serious: Yes (Other)
  Sender: FDA-Public Use
  Company Number: OMPQ-NO-0601S-0022

PATIENT
  Age: 57 Year
  Sex: Female

DRUGS (7)
  1. OMNIPAQUE 140 [Suspect]
     Indication: BREAST CANCER
     Dosage: (SINGLE DOSE) I.V.
     Route: 042
     Dates: start: 20051227, end: 20051227
  2. TEGAFUR URACIL (UFT) [Concomitant]
  3. ANASTROZOLE (ARIMIDEX) [Concomitant]
  4. EPINASTINE HYDROCHLORIDE (ALESION) [Concomitant]
  5. NAPHAZOLINE (PRIVINA) [Concomitant]
  6. NAPHAZOLINE (PRIVINA) [Concomitant]
  7. FLUOROMETHOLONE (FLUMETHOLON) [Concomitant]

REACTIONS (11)
  - DEHYDRATION [None]
  - DEPRESSED LEVEL OF CONSCIOUSNESS [None]
  - ERYTHEMA [None]
  - EXTRAVASATION [None]
  - GENERAL PHYSICAL HEALTH DETERIORATION [None]
  - HYPERSENSITIVITY [None]
  - PRURITUS [None]
  - RASH [None]
  - RASH MACULAR [None]
  - SHOCK [None]
  - SKIN DISCOLOURATION [None]
